FAERS Safety Report 7198526-3 (Version None)
Quarter: 2010Q4

REPORT INFORMATION
  Report Type: 
  Country: None (occurrence: None)
  Receive Date: 20101227
  Receipt Date: 20101222
  Transmission Date: 20110411
  Serious: Yes (Death)
  Sender: FDA-Public Use
  Company Number: PHHY2010US84721

PATIENT
  Sex: Female

DRUGS (6)
  1. EXJADE [Suspect]
     Indication: IRON OVERLOAD
     Dosage: 500 MG, BID
     Route: 048
     Dates: start: 20090301, end: 20101201
  2. LASIX [Concomitant]
     Dosage: 80 MG, BID
     Route: 048
  3. ALLOPURINOL [Concomitant]
     Indication: BLOOD URIC ACID INCREASED
     Dosage: 300 MG, DAILY
     Route: 048
  4. PHENERGAN [Concomitant]
     Dosage: 25 MG
     Route: 048
  5. DILAUDID [Concomitant]
     Indication: PAIN
     Route: 048
  6. POTASSIUM CHLORIDE [Concomitant]

REACTIONS (4)
  - CARDIAC ARREST [None]
  - PULSE ABSENT [None]
  - RESPIRATORY ARREST [None]
  - SYNCOPE [None]
